FAERS Safety Report 6536611-7 (Version None)
Quarter: 2010Q1

REPORT INFORMATION
  Report Type: 
  Country: None (occurrence: None)
  Receive Date: 20100113
  Receipt Date: 20100105
  Transmission Date: 20100710
  Serious: Yes (Hospitalization)
  Sender: FDA-Public Use
  Company Number: US-PFIZER INC-2010002193

PATIENT
  Sex: Female

DRUGS (1)
  1. CHANTIX [Suspect]
     Dosage: UNK
     Route: 048
     Dates: start: 20090101

REACTIONS (7)
  - AGGRESSION [None]
  - ANGER [None]
  - ANXIETY [None]
  - HALLUCINATION [None]
  - IMPULSIVE BEHAVIOUR [None]
  - MANIA [None]
  - PARANOIA [None]
